FAERS Safety Report 8104411-2 (Version None)
Quarter: 2012Q1

REPORT INFORMATION
  Report Type: 
  Country: None (occurrence: None)
  Receive Date: 20120130
  Receipt Date: 20120130
  Transmission Date: 20120608
  Serious: Yes (Death, Other)
  Sender: FDA-Public Use
  Company Number: JP-JNJFOC-20091207212

PATIENT
  Age: 59 Year
  Sex: Female
  Weight: 57 kg

DRUGS (30)
  1. DOXORUBICIN HCL [Suspect]
     Indication: OVARIAN CANCER RECURRENT
     Route: 042
     Dates: start: 20090630, end: 20090630
  2. DORAL [Concomitant]
     Route: 048
     Dates: end: 20090724
  3. LEXOTAN [Concomitant]
     Route: 048
     Dates: end: 20090724
  4. LASIX [Concomitant]
     Route: 048
     Dates: end: 20090608
  5. ALBUMIN (HUMAN) [Concomitant]
     Route: 041
     Dates: start: 20090610, end: 20090711
  6. FULCALIQ 1 [Concomitant]
     Route: 042
     Dates: start: 20090726, end: 20090729
  7. DECADRON [Concomitant]
     Route: 042
     Dates: start: 20090602, end: 20090602
  8. DEXTROSE [Concomitant]
     Route: 042
     Dates: start: 20090602, end: 20090602
  9. DIOVAN [Concomitant]
     Route: 048
     Dates: end: 20090606
  10. NOVAMIN [Concomitant]
     Indication: PROPHYLAXIS
     Route: 048
     Dates: end: 20090724
  11. DECADRON [Concomitant]
     Route: 042
     Dates: start: 20090630, end: 20090630
  12. DEXTROSE [Concomitant]
     Route: 042
     Dates: start: 20090729, end: 20090805
  13. MOBIC [Concomitant]
     Indication: PROPHYLAXIS
     Route: 048
     Dates: end: 20090724
  14. OXYCONTIN [Concomitant]
     Route: 048
     Dates: end: 20090727
  15. LASIX [Concomitant]
     Route: 048
     Dates: start: 20090609, end: 20090708
  16. SHAKUYAKU-K ANZO-TO [Concomitant]
     Route: 048
     Dates: end: 20090611
  17. OXINORM [Concomitant]
     Route: 048
     Dates: end: 20090724
  18. MEROPENEM [Concomitant]
     Route: 042
     Dates: start: 20090728, end: 20090805
  19. DOXORUBICIN HCL [Suspect]
     Route: 042
     Dates: start: 20090602, end: 20090602
  20. ROHYPNOL [Concomitant]
     Route: 048
     Dates: end: 20090724
  21. FAMOTIDINE [Concomitant]
     Indication: PROPHYLAXIS
     Route: 048
     Dates: end: 20090724
  22. METHYCOBAL [Concomitant]
     Route: 048
     Dates: end: 20090606
  23. FAMOTIDINE [Concomitant]
     Indication: PROPHYLAXIS
     Route: 042
     Dates: start: 20090729, end: 20090805
  24. MUCOSTA [Concomitant]
     Route: 048
     Dates: end: 20090611
  25. DEXTROSE [Concomitant]
     Route: 042
     Dates: start: 20090630, end: 20090630
  26. DESYREL [Concomitant]
     Route: 048
     Dates: end: 20090724
  27. TPN ELECTROLYTES IN PLASTIC CONTAINER [Concomitant]
     Route: 042
     Dates: start: 20090715, end: 20090725
  28. AMINOLEBAN [Concomitant]
     Route: 042
     Dates: start: 20090729, end: 20090805
  29. LOXONIN [Concomitant]
     Route: 048
     Dates: end: 20090630
  30. ALL OTHER THERAPEUTIC PRODUCT [Concomitant]
     Route: 042
     Dates: start: 20090726, end: 20090729

REACTIONS (2)
  - RENAL IMPAIRMENT [None]
  - OVARIAN CANCER [None]
